FAERS Safety Report 4727774-4 (Version None)
Quarter: 2005Q3

REPORT INFORMATION
  Report Type: 
  Country: None (occurrence: None)
  Receive Date: 20050727
  Receipt Date: 20050712
  Transmission Date: 20060218
  Serious: Yes (Other)
  Sender: FDA-Public Use
  Company Number: JP-2005-008893

PATIENT
  Age: 66 Year
  Sex: Male

DRUGS (1)
  1. PROSCOPE 370(IOPROMIDE) INFUSION [Suspect]
     Dosage: 100 ML, 1 DOSE, PARENTERAL
     Route: 051
     Dates: start: 20040101, end: 20040101

REACTIONS (2)
  - ANAPHYLACTOID SHOCK [None]
  - CONTRAST MEDIA REACTION [None]
